FAERS Safety Report 8543600-X (Version None)
Quarter: 2012Q3

REPORT INFORMATION
  Report Type: 
  Country: None (occurrence: None)
  Receive Date: 20120719
  Receipt Date: 20120719
  Transmission Date: 20120928
  Serious: Yes (Life-Threatening, Hospitalization)
  Sender: FDA-Public Use
  Company Number: None

PATIENT
  Age: 60 Year
  Sex: Female
  Weight: 68.9467 kg

DRUGS (3)
  1. INCIVEK [Suspect]
     Indication: HEPATITIS C
     Dosage: 375 MG 2 TABS. 3X DAY PO
     Route: 048
     Dates: start: 20111215, end: 20120301
  2. PEGASYS  PREF [Concomitant]
  3. RIBAPAK 400 MG [Concomitant]

REACTIONS (15)
  - FLUSHING [None]
  - DYSPNOEA [None]
  - PLATELET COUNT DECREASED [None]
  - BONE MARROW DISORDER [None]
  - SWELLING FACE [None]
  - DIZZINESS [None]
  - TREMOR [None]
  - DECREASED APPETITE [None]
  - FATIGUE [None]
  - HEADACHE [None]
  - GASTROINTESTINAL HAEMORRHAGE [None]
  - DYSGEUSIA [None]
  - HAEMOGLOBIN DECREASED [None]
  - ASTHENIA [None]
  - HEART RATE DECREASED [None]
